FAERS Safety Report 9633053 (Version 1)
Quarter: 2013Q4

REPORT INFORMATION
  Report Type: Report from Study
  Country: BR (occurrence: BR)
  Receive Date: 20131018
  Receipt Date: 20131018
  Transmission Date: 20140711
  Serious: Yes (Other)
  Sender: FDA-Public Use
  Company Number: BR-ROCHE-1290789

PATIENT
  Age: 43 Year
  Sex: Male
  Weight: 80 kg

DRUGS (6)
  1. PEG-INTERFERON ALFA 2A [Suspect]
     Indication: CHRONIC HEPATITIS C
     Route: 065
     Dates: start: 20100601
  2. PEG-INTERFERON ALFA 2A [Suspect]
     Route: 065
     Dates: start: 20121222
  3. INTERFERON ALFA-2A [Suspect]
     Indication: HEPATITIS C
     Route: 065
  4. VIRAZOLE [Suspect]
     Indication: CHRONIC HEPATITIS C
     Route: 065
     Dates: start: 20100601
  5. VIRAZOLE [Suspect]
     Route: 065
     Dates: start: 20121222
  6. TELAPREVIR [Suspect]
     Indication: HEPATITIS C
     Route: 065

REACTIONS (1)
  - Viral load increased [Unknown]
